FAERS Safety Report 5727741-8 (Version None)
Quarter: 2008Q2

REPORT INFORMATION
  Report Type: 
  Country: None (occurrence: None)
  Receive Date: 20080505
  Receipt Date: 20080428
  Transmission Date: 20081010
  Serious: Yes (Other)
  Sender: FDA-Public Use
  Company Number: TH-ROCHE-561892

PATIENT

DRUGS (4)
  1. GANCICLOVIR [Suspect]
     Dosage: 4 MG/0.4 ML
     Route: 031
  2. VANCOMYCIN [Suspect]
     Indication: ENDOPHTHALMITIS
     Route: 031
  3. AMIKACIN [Suspect]
     Indication: ENDOPHTHALMITIS
     Route: 031
  4. ANTIRETROVIRAL NOS [Concomitant]
     Indication: HIV INFECTION

REACTIONS (2)
  - CYTOMEGALOVIRUS CHORIORETINITIS [None]
  - ENDOPHTHALMITIS [None]
